FAERS Safety Report 5044838-9 (Version None)
Quarter: 2006Q3

REPORT INFORMATION
  Report Type: 
  Country: None (occurrence: None)
  Receive Date: 20060707
  Receipt Date: 20060509
  Transmission Date: 20061208
  Serious: Yes (Life-Threatening, Other)
  Sender: FDA-Public Use
  Company Number: JP-BRISTOL-MYERS SQUIBB COMPANY-13374491

PATIENT
  Age: 51 Year
  Sex: Male

DRUGS (6)
  1. TAXOL [Suspect]
     Indication: GASTRIC CANCER
     Route: 041
     Dates: start: 20060403, end: 20060403
  2. TS-1 [Concomitant]
     Route: 048
  3. CHLOR-TRIMETON [Concomitant]
     Indication: PREMEDICATION
  4. ZANTAC [Concomitant]
     Indication: PREMEDICATION
  5. ZOFRAN [Concomitant]
     Indication: PREMEDICATION
     Route: 041
     Dates: start: 20060403, end: 20060403
  6. DECADRON [Concomitant]
     Indication: PREMEDICATION
     Route: 041
     Dates: start: 20060403, end: 20060403

REACTIONS (2)
  - ANAPHYLACTOID REACTION [None]
  - HYPOXIA [None]
